FAERS Safety Report 6015731-X (Version None)
Quarter: 2008Q4

REPORT INFORMATION
  Report Type: 
  Country: None (occurrence: None)
  Receive Date: 20081222
  Receipt Date: 20080430
  Transmission Date: 20090506
  Serious: No
  Sender: FDA-Public Use
  Company Number: US-BAYER-200812092BCC

PATIENT
  Age: 43 Year
  Sex: Female
  Weight: 118 kg

DRUGS (1)
  1. ALEVE [Suspect]
     Indication: MYALGIA
     Dosage: TOTAL DAILY DOSE: 660 MG  UNIT DOSE: 220 MG
     Route: 048
     Dates: start: 20080401

REACTIONS (2)
  - HYPOAESTHESIA [None]
  - OEDEMA PERIPHERAL [None]
